FAERS Safety Report 6073777-X (Version None)
Quarter: 2009Q1

REPORT INFORMATION
  Report Type: 
  Country: None (occurrence: None)
  Receive Date: 20090204
  Receipt Date: 20090204
  Transmission Date: 20090719
  Serious: Yes (Hospitalization, Disabling)
  Sender: FDA-Public Use
  Company Number: None

PATIENT
  Sex: Male
  Weight: 63 kg

DRUGS (8)
  1. NEUPRO [Suspect]
     Indication: PARKINSON'S DISEASE
     Dosage: (2 MG QD), (4 MG QD), (6 MG QD), (4 MG QD)
     Dates: start: 20061101, end: 20061116
  2. NEUPRO [Suspect]
     Indication: PARKINSON'S DISEASE
     Dosage: (2 MG QD), (4 MG QD), (6 MG QD), (4 MG QD)
     Dates: start: 20061117, end: 20061213
  3. NEUPRO [Suspect]
     Indication: PARKINSON'S DISEASE
     Dosage: (2 MG QD), (4 MG QD), (6 MG QD), (4 MG QD)
     Dates: start: 20061214, end: 20070228
  4. NEUPRO [Suspect]
     Indication: PARKINSON'S DISEASE
     Dosage: (2 MG QD), (4 MG QD), (6 MG QD), (4 MG QD)
     Dates: start: 20070301, end: 20070317
  5. MUSARIL [Concomitant]
  6. BISOPROLOL [Concomitant]
  7. BIPERIDEN HYDROCHLORIDE TAB [Concomitant]
  8. MADOPAR [Concomitant]

REACTIONS (2)
  - CEREBROVASCULAR ACCIDENT [None]
  - HYPERTENSION [None]
